FAERS Safety Report 9127952 (Version 1)
Quarter: 2013Q1

REPORT INFORMATION
  Report Type: Spontaneous
  Country: JP (occurrence: JP)
  Receive Date: 20130122
  Receipt Date: 20130122
  Transmission Date: 20140127
  Serious: Yes (Death)
  Sender: FDA-Public Use
  Company Number: JP-JNJFOC-20130110777

PATIENT
  Sex: Female

DRUGS (5)
  1. FINIBAX [Suspect]
     Indication: PERITONITIS
     Route: 041
     Dates: start: 20121207, end: 20121209
  2. ANCARON [Concomitant]
     Indication: PRODUCT USED FOR UNKNOWN INDICATION
     Route: 065
     Dates: start: 20121207, end: 20121207
  3. PREDOPA [Concomitant]
     Indication: PRODUCT USED FOR UNKNOWN INDICATION
     Route: 065
     Dates: start: 20121207, end: 20121208
  4. DOBUTAMINE [Concomitant]
     Indication: PRODUCT USED FOR UNKNOWN INDICATION
     Route: 065
     Dates: start: 20121207, end: 20121208
  5. TAKEPRON [Concomitant]
     Indication: PROPHYLAXIS
     Route: 065
     Dates: start: 20121207, end: 20121208

REACTIONS (1)
  - Peritonitis [Fatal]
